FAERS Safety Report 4341956-5 (Version None)
Quarter: 2004Q2

REPORT INFORMATION
  Report Type: 
  Country: None (occurrence: None)
  Receive Date: 20040420
  Receipt Date: 20040218
  Transmission Date: 20050107
  Serious: Yes (Hospitalization, Other)
  Sender: FDA-Public Use
  Company Number: PHBS2004JP02511

PATIENT
  Age: 66 Year
  Sex: Female
  Weight: 45 kg

DRUGS (3)
  1. VOLTAREN [Suspect]
     Indication: PYREXIA
     Dosage: 1 TABLET/DAY
     Route: 054
     Dates: start: 20020101, end: 20020101
  2. RIBAVIRIN [Suspect]
     Indication: HEPATITIS C
     Dosage: 600 MG/DAY
     Route: 048
     Dates: start: 20020325, end: 20020501
  3. INTERFERON ALFA-2B [Suspect]
     Indication: HEPATITIS C
     Dosage: 6000 KIU
     Route: 030
     Dates: start: 20020101, end: 20020101

REACTIONS (10)
  - ALANINE AMINOTRANSFERASE INCREASED [None]
  - ANAEMIA [None]
  - ASPARTATE AMINOTRANSFERASE INCREASED [None]
  - BLOOD ALKALINE PHOSPHATASE INCREASED [None]
  - BLOOD LACTATE DEHYDROGENASE INCREASED [None]
  - BONE MARROW DEPRESSION [None]
  - BONE MARROW DISORDER [None]
  - HAEMOGLOBIN DECREASED [None]
  - THROMBOCYTOPENIA [None]
  - WHITE BLOOD CELL COUNT DECREASED [None]
